FAERS Safety Report 16911029 (Version 1)
Quarter: 2019Q4

REPORT INFORMATION
  Report Type: Spontaneous
  Country: FR (occurrence: FR)
  Receive Date: 20191012
  Receipt Date: 20191012
  Transmission Date: 20200122
  Serious: Yes (Hospitalization)
  Sender: FDA-Public Use
  Company Number: FR-ACCORD-157051

PATIENT
  Age: 66 Year
  Sex: Male
  Weight: 83.8 kg

DRUGS (16)
  1. REPAGLINIDE. [Concomitant]
     Active Substance: REPAGLINIDE
     Indication: TYPE 2 DIABETES MELLITUS
     Route: 048
  2. METFORMIN [Concomitant]
     Active Substance: METFORMIN HYDROCHLORIDE
     Indication: TYPE 2 DIABETES MELLITUS
     Route: 048
     Dates: end: 20190613
  3. PACLITAXEL/PACLITAXEL LIPOSOME [Interacting]
     Active Substance: PACLITAXEL
     Indication: OESOPHAGEAL ADENOCARCINOMA
     Route: 041
     Dates: start: 20190612, end: 20190612
  4. PACLITAXEL/PACLITAXEL LIPOSOME [Interacting]
     Active Substance: PACLITAXEL
     Indication: OESOPHAGEAL ADENOCARCINOMA
     Route: 041
     Dates: start: 20190308, end: 20190308
  5. BACTRIM [Interacting]
     Active Substance: SULFAMETHOXAZOLE\TRIMETHOPRIM
     Indication: ABSCESS LIMB
     Route: 048
     Dates: start: 20190503, end: 20190613
  6. SETOFILM [Concomitant]
     Active Substance: ONDANSETRON
     Indication: PROPHYLAXIS
     Dosage: STRENGTH: 8MG
     Route: 048
     Dates: start: 20190308
  7. LANSOPRAZOLE. [Concomitant]
     Active Substance: LANSOPRAZOLE
     Route: 048
  8. ZYLORIC [Concomitant]
     Active Substance: ALLOPURINOL
     Dosage: STRENGTH: 100 MG
     Route: 048
     Dates: end: 20190613
  9. CRESTOR [Concomitant]
     Active Substance: ROSUVASTATIN CALCIUM
     Indication: CARDIOVASCULAR EVENT PROPHYLAXIS
     Dosage: STRENGTH: 10 MG
     Route: 048
     Dates: end: 20190613
  10. RANITIDINE MYLAN [Concomitant]
     Active Substance: RANITIDINE HYDROCHLORIDE
     Indication: PROPHYLAXIS
     Dosage: STRENGTH: 150 MG
     Route: 048
     Dates: start: 20190308, end: 20190308
  11. BISOCE [Concomitant]
     Active Substance: BISOPROLOL
     Dosage: STRENGTH: 5 MG
     Route: 048
  12. CORTANCYL [Concomitant]
     Active Substance: PREDNISONE
     Route: 048
  13. AMIODARONE [Concomitant]
     Active Substance: AMIODARONE
     Route: 048
  14. CARBOPLATIN. [Suspect]
     Active Substance: CARBOPLATIN
     Indication: OESOPHAGEAL ADENOCARCINOMA
     Route: 041
     Dates: start: 20190308, end: 20190308
  15. LEVOTHYROX [Concomitant]
     Active Substance: LEVOTHYROXINE
     Dosage: STRENGTH: 150UG
     Route: 048
  16. LEVOCETIRIZINE ARROW [Concomitant]
     Indication: PROPHYLAXIS
     Dosage: STRENGTH: 5 MG
     Route: 048
     Dates: start: 20190308, end: 20190308

REACTIONS (7)
  - Escherichia sepsis [Recovered/Resolved]
  - Urinary tract infection [Recovered/Resolved]
  - Drug interaction [Unknown]
  - Aplasia [Recovered/Resolved]
  - Off label use [Unknown]
  - Abscess limb [Recovered/Resolved]
  - Mucosal inflammation [Recovered/Resolved]

NARRATIVE: CASE EVENT DATE: 20190315
